FAERS Safety Report 7637188-5 (Version None)
Quarter: 2011Q3

REPORT INFORMATION
  Report Type: 
  Country: None (occurrence: None)
  Receive Date: 20110726
  Receipt Date: 20110712
  Transmission Date: 20111222
  Serious: Yes (Other)
  Sender: FDA-Public Use
  Company Number: PHHY2011KR62242

PATIENT

DRUGS (17)
  1. PLETAL [Concomitant]
     Dosage: 50 MG, UNK
  2. MIDAZOLAM HCL [Concomitant]
     Dosage: UNK UKN, UNK
  3. KETOROLAC TROMETHAMINE [Concomitant]
     Dosage: UNK UKN, UNK
  4. MEPERIDINE HCL [Concomitant]
     Dosage: UNK UKN, UNK
  5. CETIRIZINE HYDROCHLORIDE [Concomitant]
     Dosage: UNK UKN, UNK
  6. AMBROXOL [Concomitant]
     Dosage: UNK UKN, UNK
  7. ASPIRIN [Concomitant]
     Dosage: UNK UKN, UNK
  8. LIDOCAINE HYDROCHLORIDE [Concomitant]
     Dosage: UNK UKN, UNK
  9. PRAVASTATIN SODIUM [Concomitant]
     Dosage: UNK UKN, UNK
  10. CHOLINE ALFOSCERATE [Concomitant]
     Dosage: UNK UKN, UNK
  11. SIMETHICONE [Concomitant]
     Dosage: UNK UKN, UNK
  12. CLINDAMYCIN HCL [Concomitant]
     Dosage: UNK UKN, UNK
  13. HETASTARCH IN SODIUM CHLORIDE [Concomitant]
     Dosage: UNK UKN, UNK
  14. SCOPOLAMINE BUTYLBROMIDE [Concomitant]
     Dosage: UNK UKN, UNK
  15. CARBAMAZEPINE [Suspect]
     Dosage: UNK UKN, UNK
     Route: 048
  16. INSULIN [Concomitant]
     Dosage: UNK UKN, UNK
  17. CEFOTAXIME SODIUM [Concomitant]
     Dosage: UNK UKN, UNK

REACTIONS (1)
  - TRANSIENT ISCHAEMIC ATTACK [None]
